FAERS Safety Report 5318771-9 (Version None)
Quarter: 2007Q2

REPORT INFORMATION
  Report Type: 
  Country: None (occurrence: None)
  Receive Date: 20070508
  Receipt Date: 20070502
  Transmission Date: 20071010
  Serious: Yes (Hospitalization)
  Sender: FDA-Public Use
  Company Number: US-ASTRAZENECA-2007UW09371

PATIENT
  Age: 38 Year
  Sex: Female
  Weight: 99.8 kg

DRUGS (4)
  1. SEROQUEL [Suspect]
     Indication: SCHIZOAFFECTIVE DISORDER
     Route: 048
  2. SEROQUEL [Suspect]
     Route: 048
     Dates: start: 20050101
  3. RISPERDAL [Concomitant]
     Route: 048
  4. GEODON [Concomitant]
     Route: 048

REACTIONS (4)
  - CARDIAC DISORDER [None]
  - DYSKINESIA [None]
  - HALLUCINATION, AUDITORY [None]
  - WEIGHT INCREASED [None]
